FAERS Safety Report 8616448-5 (Version None)
Quarter: 2012Q3

REPORT INFORMATION
  Report Type: 
  Country: None (occurrence: None)
  Receive Date: 20120823
  Receipt Date: 20120813
  Transmission Date: 20120928
  Serious: Yes (Death, Hospitalization)
  Sender: FDA-Public Use
  Company Number: PE-AMGEN-PERSP2012052402

PATIENT
  Sex: Female

DRUGS (1)
  1. PROLIA [Suspect]
     Indication: OSTEOPOROSIS
     Dosage: 60MG SEE DOSAGE TEXT
     Route: 042
     Dates: start: 20111205

REACTIONS (6)
  - URINARY TRACT INFECTION [None]
  - HYPONATRAEMIA [None]
  - URINARY TRACT DISORDER [None]
  - ASTHENIA [None]
  - UROSEPSIS [None]
  - SARCOPENIA [None]
